FAERS Safety Report 6693140-8 (Version None)
Quarter: 2010Q2

REPORT INFORMATION
  Report Type: 
  Country: None (occurrence: None)
  Receive Date: 20100422
  Receipt Date: 20100409
  Transmission Date: 20101027
  Serious: Yes (Hospitalization)
  Sender: FDA-Public Use
  Company Number: DE-WATSON-2010-05061

PATIENT

DRUGS (11)
  1. RAMIPRIL [Suspect]
     Indication: HYPERTENSION
     Dosage: 10 MG, UNK
     Route: 048
     Dates: start: 20081101
  2. ASPIRIN [Suspect]
     Indication: CORONARY ARTERY DISEASE
     Dosage: 100 MG, UNK
     Route: 048
     Dates: start: 20081101
  3. CANDESARTAN [Suspect]
     Indication: HYPERTENSION
     Dosage: 1 DF, UNK
     Route: 048
     Dates: start: 20081101, end: 20091104
  4. NITROLINGUAL PUMPSPRAY [Suspect]
     Indication: CORONARY ARTERY DISEASE
     Dosage: 0.8 MG, UNK
     Route: 060
     Dates: start: 20091104, end: 20091104
  5. AMLODIPINE [Concomitant]
     Indication: HYPERTENSION
     Dosage: 5 MG, UNK
     Route: 048
     Dates: start: 20081101
  6. PANTOZOL                           /01263202/ [Concomitant]
     Indication: GASTRECTOMY
     Dosage: 20 MG, UNK
     Route: 048
     Dates: start: 19980101
  7. MIRTAZAPINE [Concomitant]
     Indication: DEPRESSION
     Dosage: 30 MG, UNK
     Route: 048
     Dates: start: 20081101, end: 20091104
  8. NOVAMIN                            /00013301/ [Concomitant]
     Indication: PAIN
     Dosage: 20GTT DROP(S), UNK
     Route: 048
     Dates: start: 20081101
  9. PALLADON                           /00080902/ [Concomitant]
     Indication: PAIN
     Dosage: 4 MG, UNK
     Route: 048
     Dates: start: 20081101
  10. LACTULOSE [Concomitant]
     Indication: CONSTIPATION
     Dosage: 1 DF, UNK
     Route: 048
     Dates: start: 20081101
  11. INSULIN ACTRAPID HM [Concomitant]
     Indication: TYPE 2 DIABETES MELLITUS
     Dosage: 8-4-4 IU
     Route: 058
     Dates: start: 20080101

REACTIONS (1)
  - HYPERSENSITIVITY [None]
